FAERS Safety Report 11529718 (Version 1)
Quarter: 2015Q3

REPORT INFORMATION
  Report Type: Spontaneous
  Country: US (occurrence: US)
  Receive Date: 20150921
  Receipt Date: 20150921
  Transmission Date: 20151125
  Serious: Yes (Hospitalization)
  Sender: FDA-Public Use
  Company Number: US-INSYS THERAPEUTICS, INC-INS201509-000381

PATIENT
  Age: 49 Year
  Sex: Male
  Weight: 90.71 kg

DRUGS (2)
  1. MORPHINE [Concomitant]
     Active Substance: MORPHINE
  2. SUBSYS [Suspect]
     Active Substance: FENTANYL
     Indication: PAIN
     Dates: start: 201409

REACTIONS (2)
  - Off label use [Unknown]
  - Hip surgery [Unknown]

NARRATIVE: CASE EVENT DATE: 201409
